FAERS Safety Report 9542409 (Version 2)
Quarter: 2013Q4

REPORT INFORMATION
  Report Type: Spontaneous
  Country: US (occurrence: None)
  Receive Date: 20130918
  Receipt Date: 20131002
  Transmission Date: 20140711
  Serious: Yes (Hospitalization)
  Sender: FDA-Public Use
  Company Number: 2013-1474

PATIENT
  Age: 58 Year
  Sex: Male

DRUGS (10)
  1. KYPROLIS [Suspect]
     Indication: PRODUCT USED FOR UNKNOWN INDICATION
     Route: 042
     Dates: start: 201306
  2. CYTOXAN (CYCLOPHOSPHAMIDE) (CYCLOPHOSPHAMIDE) [Concomitant]
  3. BACTRIM (SULFAMETHOXAZOLE, TRIMETHOPRIM) (SULFAMETHOXAZOLE, TRIMETHOPRIM) [Concomitant]
  4. VIAGRA (SILDENAFIL CITRATE) (SILDENAFIL CITRATE) [Concomitant]
  5. GABAPENTIN (GABAPENTIN) (GABAPENTIN) [Concomitant]
  6. PRILOSEC (OMEPRAZOLE) (OMEPRAZOLE) [Concomitant]
  7. SYNTHROID (LEVOTHYROXINE SODIUM) (LEVOTHYROXINE SODIUM) [Concomitant]
  8. VALTREX (VALACICLOVIR HYDROCHLORIDE) (VALACICLOVIR HYDROCHLORIDE) [Concomitant]
  9. ZOMETA (ZOLEDRONIC ACID) (ZOLEDRONIC ACID) [Concomitant]
  10. TURMERIC (CURCUMA LONGA RHIZOME) (CURCUMA LONGA RHIZOME) [Concomitant]

REACTIONS (1)
  - Atrial fibrillation [None]
